FAERS Safety Report 9671800 (Version 1)
Quarter: 2013Q4

REPORT INFORMATION
  Report Type: Spontaneous
  Country: US (occurrence: US)
  Receive Date: 20131106
  Receipt Date: 20131106
  Transmission Date: 20140711
  Serious: No
  Sender: FDA-Public Use
  Company Number: US-PFIZER INC-2013315398

PATIENT
  Age: 61 Year
  Sex: Male
  Weight: 86.17 kg

DRUGS (8)
  1. VIAGRA [Suspect]
     Indication: ERECTILE DYSFUNCTION
     Dosage: 50 MG, AS NEEDED
     Route: 048
     Dates: start: 2012
  2. ATORVASTATIN CALCIUM [Concomitant]
     Indication: BLOOD CHOLESTEROL INCREASED
     Dosage: 20 MG, DAILY
  3. TRAZODONE [Concomitant]
     Indication: SLEEP DISORDER
     Dosage: 200 MG, DAILY AT NIGHT
  4. CREON [Concomitant]
     Indication: COLON INJURY
     Dosage: 6000 IU, 3X/DAY
  5. BUDESONIDE [Concomitant]
     Indication: COLON INJURY
     Dosage: 3 MG, 2X/DAY
  6. FOLIC ACID [Concomitant]
     Dosage: UNK
  7. VITAMIN C [Concomitant]
     Dosage: UNK
  8. MELATONIN [Concomitant]
     Dosage: UNK

REACTIONS (1)
  - Drug ineffective [Unknown]
